FAERS Safety Report 6511805-5 (Version None)
Quarter: 2009Q4

REPORT INFORMATION
  Report Type: 
  Country: None (occurrence: None)
  Receive Date: 20091222
  Receipt Date: 20091215
  Transmission Date: 20100525
  Serious: Yes (Death, Hospitalization, Other)
  Sender: FDA-Public Use
  Company Number: US-BAXTER-2009BH013654

PATIENT
  Age: 80 Year
  Sex: Female

DRUGS (5)
  1. HEPARIN SODIUM INJECTION [Suspect]
     Indication: DIALYSIS
     Route: 042
     Dates: start: 20070425, end: 20070427
  2. HEPARIN SODIUM INJECTION [Suspect]
     Route: 042
     Dates: start: 20070430, end: 20070430
  3. HEPARIN SODIUM INJECTION [Suspect]
     Route: 042
     Dates: start: 20070502, end: 20070502
  4. ANTIBIOTICS [Concomitant]
     Indication: DRUG USE FOR UNKNOWN INDICATION
     Route: 065
  5. EPOGEN [Concomitant]
     Indication: DRUG USE FOR UNKNOWN INDICATION
     Route: 065

REACTIONS (6)
  - ASTHENIA [None]
  - DEATH [None]
  - DIARRHOEA [None]
  - HYPOTENSION [None]
  - MALAISE [None]
  - UNRESPONSIVE TO STIMULI [None]
